FAERS Safety Report 7379179-8 (Version None)
Quarter: 2011Q1

REPORT INFORMATION
  Report Type: 
  Country: None (occurrence: None)
  Receive Date: 20110328
  Receipt Date: 20110323
  Transmission Date: 20110831
  Serious: Yes (Death, Other)
  Sender: FDA-Public Use
  Company Number: PHHY2011AU22977

PATIENT
  Sex: Female

DRUGS (1)
  1. CEFTRIAXONE [Suspect]
     Indication: INFECTION
     Dosage: 1 G, UNK

REACTIONS (6)
  - HAEMATOCHEZIA [None]
  - HAEMORRHAGE [None]
  - TONGUE DISCOLOURATION [None]
  - DEATH [None]
  - BLOOD CREATININE INCREASED [None]
  - DYSPHAGIA [None]
